FAERS Safety Report 9648897 (Version 1)
Quarter: 2013Q4

REPORT INFORMATION
  Report Type: Spontaneous
  Country: US (occurrence: US)
  Receive Date: 20131028
  Receipt Date: 20131028
  Transmission Date: 20140711
  Serious: Yes (Other)
  Sender: FDA-Public Use
  Company Number: US-SA-2013SA107874

PATIENT
  Age: 77 Year
  Sex: Female

DRUGS (3)
  1. MULTAQ [Suspect]
     Indication: TACHYCARDIA PAROXYSMAL
     Route: 048
     Dates: start: 201302
  2. MULTAQ [Suspect]
     Indication: TACHYCARDIA PAROXYSMAL
     Dosage: TAKEN FROM : 1 MONTH AGO
     Route: 048
  3. PEPCID AC [Concomitant]
     Indication: GASTROOESOPHAGEAL REFLUX DISEASE

REACTIONS (5)
  - Pulmonary fibrosis [Not Recovered/Not Resolved]
  - Cough [Not Recovered/Not Resolved]
  - Dyspnoea [Not Recovered/Not Resolved]
  - Decreased appetite [Not Recovered/Not Resolved]
  - Asthenia [Not Recovered/Not Resolved]
